FAERS Safety Report 5806196-9 (Version None)
Quarter: 2008Q3

REPORT INFORMATION
  Report Type: 
  Country: None (occurrence: None)
  Receive Date: 20080709
  Receipt Date: 20080709
  Transmission Date: 20090109
  Serious: Yes (Life-Threatening)
  Sender: FDA-Public Use
  Company Number: None

PATIENT
  Age: 7 Year
  Sex: Male
  Weight: 19 kg

DRUGS (7)
  1. RITUXIMAB   ROCHE [Suspect]
     Indication: CHEST DISCOMFORT
     Dosage: 300 MG OVER 8 HOURS IV
     Route: 042
     Dates: start: 20070701, end: 20080701
  2. RITUXIMAB   ROCHE [Suspect]
     Indication: OXYGEN SATURATION DECREASED
     Dosage: 300 MG OVER 8 HOURS IV
     Route: 042
     Dates: start: 20070701, end: 20080701
  3. RITUXIMAB   ROCHE [Suspect]
     Indication: TACHYCARDIA
     Dosage: 300 MG OVER 8 HOURS IV
     Route: 042
     Dates: start: 20070701, end: 20080701
  4. RITUXIMAB   ROCHE [Suspect]
     Indication: TACHYPNOEA
     Dosage: 300 MG OVER 8 HOURS IV
     Route: 042
     Dates: start: 20070701, end: 20080701
  5. ETOPOSIDE [Concomitant]
  6. CARBOPLATIN [Concomitant]
  7. RANITIDINE HCL [Concomitant]

REACTIONS (4)
  - CHEST DISCOMFORT [None]
  - OXYGEN SATURATION DECREASED [None]
  - TACHYCARDIA [None]
  - TACHYPNOEA [None]
